FAERS Safety Report 4663027-0 (Version None)
Quarter: 2005Q2

REPORT INFORMATION
  Report Type: 
  Country: None (occurrence: None)
  Receive Date: 20050513
  Receipt Date: 20050506
  Transmission Date: 20051028
  Serious: Yes (Other)
  Sender: FDA-Public Use
  Company Number: GBWYE647106MAY05

PATIENT
  Age: 23 Year
  Sex: Male

DRUGS (3)
  1. EFFEXOR XR [Suspect]
     Dosage: 150 MG
     Route: 048
     Dates: start: 20020101
  2. ALCOHOL (ETHANOL) [Suspect]
     Dosage: DRINS EXCESSIVELY
     Route: 048
  3. TRAZODONE HCL [Concomitant]

REACTIONS (9)
  - ABNORMAL BEHAVIOUR [None]
  - INJURY ASPHYXIATION [None]
  - MOOD SWINGS [None]
  - NIGHTMARE [None]
  - OVERDOSE [None]
  - PARANOIA [None]
  - SEXUAL DYSFUNCTION [None]
  - SUICIDAL IDEATION [None]
  - SUICIDE ATTEMPT [None]
